FAERS Safety Report 4716831-4 (Version None)
Quarter: 2005Q3

REPORT INFORMATION
  Report Type: 
  Country: None (occurrence: None)
  Receive Date: 20050714
  Receipt Date: 20050704
  Transmission Date: 20060218
  Serious: Yes (Death, Hospitalization)
  Sender: FDA-Public Use
  Company Number: 2005080690

PATIENT
  Age: 65 Year
  Sex: Male
  Weight: 63 kg

DRUGS (9)
  1. FLUCONAZOLE [Suspect]
     Indication: ILL-DEFINED DISORDER
     Dates: start: 20050331, end: 20050407
  2. AMIKACIN [Suspect]
     Indication: ILL-DEFINED DISORDER
     Dates: start: 20050331, end: 20050404
  3. VALPROIC ACID [Suspect]
     Indication: ILL-DEFINED DISORDER
     Dates: start: 20050404, end: 20050417
  4. CALCIPARINE [Suspect]
     Indication: ILL-DEFINED DISORDER
  5. TAZOCILLINE (PIPERACILLIN SODIUM, TAZOBACTAM SODIUM) [Concomitant]
     Indication: ILL-DEFINED DISORDER
     Dates: start: 20050331, end: 20050404
  6. ACETAMINOPHEN [Suspect]
     Indication: ILL-DEFINED DISORDER
     Dosage: 1 GRAM
  7. NEORECORMON (EPOETIN BETA) [Concomitant]
  8. CALCIDIA (CALCIUM CARBONATE) [Concomitant]
  9. TRAMADOL HCL [Concomitant]

REACTIONS (2)
  - HAEMOLYTIC ANAEMIA [None]
  - NORMOCHROMIC NORMOCYTIC ANAEMIA [None]
